FAERS Safety Report 4772204-X (Version None)
Quarter: 2005Q3

REPORT INFORMATION
  Report Type: 
  Country: None (occurrence: None)
  Receive Date: 20050919
  Receipt Date: 20041228
  Transmission Date: 20060218
  Serious: No
  Sender: FDA-Public Use
  Company Number: US-BRISTOL-MYERS SQUIBB COMPANY-12808184

PATIENT
  Age: 29 Year
  Sex: Female
  Weight: 101 kg

DRUGS (1)
  1. DEFINITY [Suspect]
     Indication: CHEST PAIN
     Route: 042

REACTIONS (3)
  - BACK PAIN [None]
  - DYSPNOEA [None]
  - PAIN IN EXTREMITY [None]
